FAERS Safety Report 9784077 (Version 2)
Quarter: 2013Q4

REPORT INFORMATION
  Report Type: Report from Study
  Country: US (occurrence: US)
  Receive Date: 20131226
  Receipt Date: 20131226
  Transmission Date: 20140711
  Serious: Yes (Other)
  Sender: FDA-Public Use
  Company Number: US-BAXTER-2013BAX050644

PATIENT
  Age: 23 Year
  Sex: Female

DRUGS (2)
  1. GAMMAGARD S/D [Suspect]
     Indication: NEUROPATHY PERIPHERAL
     Route: 042
  2. GAMMAGARD S/D [Suspect]
     Indication: OFF LABEL USE

REACTIONS (1)
  - Drug ineffective [Unknown]
